FAERS Safety Report 4276188-2 (Version None)
Quarter: 2004Q1

REPORT INFORMATION
  Report Type: 
  Country: None (occurrence: None)
  Receive Date: 20040120
  Receipt Date: 20040120
  Transmission Date: 20041129
  Serious: No
  Sender: FDA-Public Use
  Company Number: None

PATIENT
  Age: 84 Year
  Sex: Male
  Weight: 84.8226 kg

DRUGS (6)
  1. VIOXX [Suspect]
     Dosage: 25MG PO QD
     Route: 048
     Dates: end: 20031107
  2. ZOCOR [Suspect]
     Indication: HYPERCHOLESTEROLAEMIA
     Dates: start: 20030930, end: 20031027
  3. LEVOXYL [Concomitant]
  4. COUMADIN [Concomitant]
  5. SINEMET [Concomitant]
  6. MULTI-VITAMIN [Concomitant]

REACTIONS (2)
  - ALANINE AMINOTRANSFERASE INCREASED [None]
  - ASPARTATE AMINOTRANSFERASE INCREASED [None]
